FAERS Safety Report 11876029 (Version 3)
Quarter: 2016Q1

REPORT INFORMATION
  Report Type: Spontaneous
  Country: JP (occurrence: JP)
  Receive Date: 20151229
  Receipt Date: 20160205
  Transmission Date: 20160526
  Serious: Yes (Other)
  Sender: FDA-Public Use
  Company Number: JP-PFIZER INC-2015467904

PATIENT
  Age: 30 Year
  Sex: Female

DRUGS (11)
  1. LIMAS [Suspect]
     Active Substance: LITHIUM CARBONATE
     Dosage: 200 MG, 2X/DAY
     Route: 048
     Dates: start: 201103
  2. JZOLOFT OD [Suspect]
     Active Substance: SERTRALINE HYDROCHLORIDE
     Indication: ANXIETY
     Dosage: 75 MG, 1X/DAY
     Route: 048
     Dates: start: 201103, end: 20150724
  3. TRANILAST [Suspect]
     Active Substance: TRANILAST
     Dosage: 100 MG, 2X/DAY
     Route: 048
     Dates: start: 201506, end: 20151202
  4. SELENICA R [Suspect]
     Active Substance: VALPROATE SODIUM
     Dosage: 200 MG, 2X/DAY
     Route: 048
     Dates: start: 201103
  5. GASCON [Suspect]
     Active Substance: DIMETHICONE
     Dosage: 80 MG, 3X/DAY
     Route: 048
     Dates: start: 20151006, end: 20151106
  6. RISPERDAL [Concomitant]
     Active Substance: RISPERIDONE
     Dosage: 1 MG, 1X/DAY
     Route: 048
     Dates: start: 201103
  7. GASTER [Concomitant]
     Active Substance: FAMOTIDINE
     Dosage: 20 MG, 2X/DAY
     Route: 048
     Dates: start: 20151106
  8. JZOLOFT OD [Suspect]
     Active Substance: SERTRALINE HYDROCHLORIDE
     Dosage: 50 MG, 1X/DAY
     Route: 048
     Dates: start: 20150724
  9. GASCON [Suspect]
     Active Substance: DIMETHICONE
     Indication: ABDOMINAL DISTENSION
     Dosage: 40 MG, 2X/DAY
     Route: 048
     Dates: start: 20150609, end: 20150903
  10. SELBEX [Suspect]
     Active Substance: TEPRENONE
     Dosage: 50 MG, 3X/DAY
     Route: 048
     Dates: start: 201103
  11. HOCHUEKKITO /07973001/ [Concomitant]
     Active Substance: HERBALS
     Dosage: 1 DF, 3X/DAY
     Route: 048
     Dates: start: 201103

REACTIONS (5)
  - Hypophagia [Recovering/Resolving]
  - Abdominal pain upper [Recovering/Resolving]
  - Diarrhoea [Recovered/Resolved]
  - Constipation [Recovering/Resolving]
  - Abdominal pain [Recovering/Resolving]

NARRATIVE: CASE EVENT DATE: 20151020
